FAERS Safety Report 18252828 (Version 2)
Quarter: 2021Q2

REPORT INFORMATION
  Report Type: Spontaneous
  Country: US (occurrence: US)
  Receive Date: 20200910
  Receipt Date: 20210621
  Transmission Date: 20210717
  Serious: Yes (Other)
  Sender: FDA-Public Use
  Company Number: US-GILEAD-2020-0493801

PATIENT
  Age: 41 Year
  Sex: Male
  Weight: 95.24 kg

DRUGS (35)
  1. BACTRIM [Concomitant]
     Active Substance: SULFAMETHOXAZOLE\TRIMETHOPRIM
  2. LATUDA [Concomitant]
     Active Substance: LURASIDONE HYDROCHLORIDE
  3. DEPAKOTE [Concomitant]
     Active Substance: DIVALPROEX SODIUM
  4. SOLU?MEDROL [Concomitant]
     Active Substance: METHYLPREDNISOLONE SODIUM SUCCINATE
  5. FLONASE ALLERGY RELIEF [Concomitant]
     Active Substance: FLUTICASONE PROPIONATE
  6. DULERA [Concomitant]
     Active Substance: FORMOTEROL FUMARATE DIHYDRATE\MOMETASONE FUROATE
  7. SINGULAIR [Concomitant]
     Active Substance: MONTELUKAST SODIUM
  8. ATORVASTATIN [Concomitant]
     Active Substance: ATORVASTATIN
  9. PRAVASTATIN. [Concomitant]
     Active Substance: PRAVASTATIN
  10. LEVOFLOXACIN. [Concomitant]
     Active Substance: LEVOFLOXACIN
  11. ATRIPLA [Suspect]
     Active Substance: EFAVIRENZ\EMTRICITABINE\TENOFOVIR DISOPROXIL FUMARATE
     Indication: HIV INFECTION
     Dosage: UNK
     Route: 048
     Dates: start: 20120301, end: 20150410
  12. CELEBREX [Concomitant]
     Active Substance: CELECOXIB
  13. PROPOFOL. [Concomitant]
     Active Substance: PROPOFOL
  14. GABAPENTIN. [Concomitant]
     Active Substance: GABAPENTIN
  15. VISTARIL [Concomitant]
     Active Substance: HYDROXYZINE PAMOATE
  16. SEROQUEL [Concomitant]
     Active Substance: QUETIAPINE FUMARATE
  17. ACETAMINOPHEN. [Concomitant]
     Active Substance: ACETAMINOPHEN
  18. HEPARIN [Concomitant]
     Active Substance: HEPARIN SODIUM
  19. ZYRTEC [Concomitant]
     Active Substance: CETIRIZINE HYDROCHLORIDE
  20. ARICEPT [Concomitant]
     Active Substance: DONEPEZIL HYDROCHLORIDE
  21. FLEET LAXATIVE [Concomitant]
  22. PREDNISONE. [Concomitant]
     Active Substance: PREDNISONE
  23. ASPIRIN (E.C.) [Concomitant]
     Active Substance: ASPIRIN
  24. RAMELTEON [Concomitant]
     Active Substance: RAMELTEON
  25. AMBIEN [Concomitant]
     Active Substance: ZOLPIDEM TARTRATE
  26. FAMOTIDINE. [Concomitant]
     Active Substance: FAMOTIDINE
  27. LITHIUM. [Concomitant]
     Active Substance: LITHIUM
  28. OMEPRAZOLE. [Concomitant]
     Active Substance: OMEPRAZOLE
  29. TRIMETHOPRIM SULFAMETHOXAZOLE [Concomitant]
     Active Substance: SULFAMETHOXAZOLE\TRIMETHOPRIM
  30. VALGANCICLOVIR. [Concomitant]
     Active Substance: VALGANCICLOVIR
  31. PREDNISOLONE. [Concomitant]
     Active Substance: PREDNISOLONE
  32. VANCOMYCIN [Concomitant]
     Active Substance: VANCOMYCIN
  33. TRIUMEQ [Concomitant]
     Active Substance: ABACAVIR SULFATE\DOLUTEGRAVIR SODIUM\LAMIVUDINE
  34. KLONOPIN [Concomitant]
     Active Substance: CLONAZEPAM
  35. ATROVENT [Concomitant]
     Active Substance: IPRATROPIUM BROMIDE

REACTIONS (8)
  - Tooth loss [Not Recovered/Not Resolved]
  - Emotional disorder [Unknown]
  - Chronic kidney disease [Not Recovered/Not Resolved]
  - Knee arthroplasty [Not Recovered/Not Resolved]
  - Bone loss [Unknown]
  - Fracture [Unknown]
  - Bone density decreased [Unknown]
  - Osteonecrosis [Not Recovered/Not Resolved]

NARRATIVE: CASE EVENT DATE: 20150122
